FAERS Safety Report 12426652 (Version 1)
Quarter: 2016Q2

REPORT INFORMATION
  Report Type: Spontaneous
  Country: GB (occurrence: GB)
  Receive Date: 20160601
  Receipt Date: 20160601
  Transmission Date: 20160815
  Serious: Yes (Hospitalization, Other)
  Sender: FDA-Public Use
  Company Number: GB-SA-2016SA101910

PATIENT
  Age: 48 Year
  Sex: Female

DRUGS (5)
  1. CAMPATH [Suspect]
     Active Substance: ALEMTUZUMAB
     Indication: IMMUNOSUPPRESSION
     Route: 065
  2. WARFARIN [Concomitant]
     Active Substance: WARFARIN
  3. HEPARIN [Concomitant]
     Active Substance: HEPARIN SODIUM
  4. METHYLPREDNISOLONE. [Suspect]
     Active Substance: METHYLPREDNISOLONE
     Indication: IMMUNOSUPPRESSION
     Route: 065
  5. PROGRAF [Suspect]
     Active Substance: TACROLIMUS\TACROLIMUS ANHYDROUS
     Indication: IMMUNOSUPPRESSION
     Route: 065

REACTIONS (3)
  - Respiratory tract infection [Unknown]
  - Off label use [Unknown]
  - Cytomegalovirus infection [Unknown]
